FAERS Safety Report 6434862-3 (Version None)
Quarter: 2009Q4

REPORT INFORMATION
  Report Type: 
  Country: None (occurrence: None)
  Receive Date: 20091110
  Receipt Date: 20091102
  Transmission Date: 20100525
  Serious: Yes (Other)
  Sender: FDA-Public Use
  Company Number: US-JNJFOC-20091101298

PATIENT
  Age: 58 Year
  Sex: Male

DRUGS (1)
  1. LEVAQUIN [Suspect]
     Indication: PNEUMONIA
     Route: 048
     Dates: start: 20091001, end: 20091001

REACTIONS (4)
  - ARTHRALGIA [None]
  - PROSTATIC SPECIFIC ANTIGEN INCREASED [None]
  - TENDON PAIN [None]
  - TENDONITIS [None]
